FAERS Safety Report 4574691-9 (Version None)
Quarter: 2005Q1

REPORT INFORMATION
  Report Type: 
  Country: None (occurrence: None)
  Receive Date: 20050204
  Receipt Date: 20050120
  Transmission Date: 20050727
  Serious: Yes (Hospitalization)
  Sender: FDA-Public Use
  Company Number: 21807

PATIENT

DRUGS (2)
  1. NIASPAN [Suspect]
  2. ASPIRIN [Suspect]

REACTIONS (1)
  - GASTROINTESTINAL HAEMORRHAGE [None]
